FAERS Safety Report 21953358 (Version 1)
Quarter: 2023Q1

REPORT INFORMATION
  Report Type: Spontaneous
  Country: AU (occurrence: AU)
  Receive Date: 20230204
  Receipt Date: 20230204
  Transmission Date: 20230418
  Serious: Yes (Other)
  Sender: FDA-Public Use
  Company Number: AU-002147023-NVSC2023AU022955

PATIENT
  Age: 59 Year
  Sex: Male

DRUGS (5)
  1. IMATINIB [Suspect]
     Active Substance: IMATINIB
     Indication: Chronic myeloid leukaemia
     Dosage: 400 MG, QD
     Route: 065
  2. IMATINIB [Suspect]
     Active Substance: IMATINIB
     Dosage: 800 MG, QD
     Route: 065
  3. NILOTINIB [Suspect]
     Active Substance: NILOTINIB
     Indication: Chronic myeloid leukaemia
     Dosage: UNK
     Route: 065
  4. DASATINIB [Suspect]
     Active Substance: DASATINIB
     Indication: Product used for unknown indication
     Dosage: 100 MG, QD
     Route: 065
  5. BOSUTINIB [Suspect]
     Active Substance: BOSUTINIB
     Indication: Product used for unknown indication
     Dosage: UNK
     Route: 065

REACTIONS (15)
  - Gastric antral vascular ectasia [Unknown]
  - Renal impairment [Unknown]
  - Gastrointestinal haemorrhage [Not Recovered/Not Resolved]
  - Peripheral vascular disorder [Unknown]
  - Oedema [Unknown]
  - Hypercholesterolaemia [Unknown]
  - Hyperglycaemia [Unknown]
  - Gastrointestinal toxicity [Unknown]
  - Diarrhoea [Unknown]
  - Nausea [Unknown]
  - Vomiting [Unknown]
  - Dyspepsia [Unknown]
  - Abdominal pain [Unknown]
  - Pleural effusion [Not Recovered/Not Resolved]
  - Therapeutic response decreased [Unknown]
